FAERS Safety Report 8922428 (Version 1)
Quarter: 2012Q4

REPORT INFORMATION
  Report Type: 
  Country: GB (occurrence: GB)
  Receive Date: 20121123
  Receipt Date: 20121123
  Transmission Date: 20130627
  Serious: Yes (Other)
  Sender: FDA-Public Use
  Company Number: GB-JNJFOC-20121110158

PATIENT
  Age: 6 Year
  Sex: Male
  Weight: 26 kg

DRUGS (3)
  1. MEBENDAZOLE [Suspect]
     Indication: ENTEROBIASIS
     Route: 048
  2. LAMOTRIGINE [Concomitant]
     Indication: PRODUCT USED FOR UNKNOWN INDICATION
     Route: 065
  3. PHENYTOIN [Concomitant]
     Indication: EPILEPSY
     Route: 065

REACTIONS (1)
  - Seizure cluster [Recovered/Resolved]
